FAERS Safety Report 7505730-0 (Version None)
Quarter: 2011Q2

REPORT INFORMATION
  Report Type: 
  Country: None (occurrence: None)
  Receive Date: 20110526
  Receipt Date: 20110512
  Transmission Date: 20111010
  Serious: Yes (Hospitalization)
  Sender: FDA-Public Use
  Company Number: US-CELGENEUS-163-AB007-11043612

PATIENT
  Age: 62 Year
  Sex: Female
  Weight: 148 kg

DRUGS (24)
  1. VIDAZA [Suspect]
     Dosage: 75 MILLIGRAM/SQ. METER
     Route: 065
     Dates: start: 20110404, end: 20110408
  2. NEUPOGEN [Concomitant]
     Route: 050
     Dates: start: 20110429
  3. VIDAZA [Suspect]
     Indication: BREAST CANCER
  4. ALOXI [Concomitant]
     Indication: NAUSEA
     Dosage: .25 MILLIGRAM
     Route: 051
     Dates: start: 20110411
  5. PLAVIX [Concomitant]
     Indication: CEREBROVASCULAR ACCIDENT PROPHYLAXIS
     Dosage: 75 MILLIGRAM
     Route: 048
     Dates: start: 20010501, end: 20101101
  6. IMODIUM [Concomitant]
     Route: 048
     Dates: start: 20100601
  7. ABRAXANE [Suspect]
     Dosage: 100 MILLIGRAM/SQ. METER
     Route: 065
     Dates: start: 20110411, end: 20110411
  8. ZOMETA [Concomitant]
     Route: 065
  9. FASLODEX [Concomitant]
     Route: 065
  10. COMPAZINE [Concomitant]
     Indication: NAUSEA
     Dosage: 10 MILLIGRAM
     Route: 048
     Dates: end: 20110401
  11. HYDROCHLOROTHIAZIDE [Concomitant]
     Indication: HYPERTENSION
     Dosage: 25 MILLIGRAM
     Route: 048
     Dates: end: 20100401
  12. NEUPOGEN [Concomitant]
     Dosage: 480 MILLIGRAM
     Route: 058
     Dates: start: 20110425
  13. CARDIZEM SR [Concomitant]
     Indication: HYPERTENSION
     Dosage: 240 MILLIGRAM
     Route: 048
  14. PREVACID [Concomitant]
     Dosage: 50 MILLIGRAM
     Route: 048
     Dates: start: 20101201
  15. POTASSIUM CHLORIDE [Concomitant]
     Route: 065
  16. DECADRON [Concomitant]
     Dosage: 8 MILLIGRAM
     Route: 048
  17. ZOFRAN [Concomitant]
     Indication: NAUSEA
     Dosage: 8 MILLIGRAM
     Route: 048
     Dates: start: 20110404, end: 20110408
  18. ABRAXANE [Suspect]
     Indication: BREAST CANCER
  19. MEGACE [Concomitant]
     Route: 065
  20. LORTAB [Concomitant]
     Indication: PAIN
     Dosage: 7.5 MILLIGRAM
     Route: 048
     Dates: start: 20080501
  21. CRESTOR [Concomitant]
     Dosage: 10 MILLIGRAM
     Route: 048
     Dates: start: 20090501
  22. VITAMIN D [Concomitant]
     Indication: SUPPLEMENTATION THERAPY
     Dosage: 5000IU
     Route: 048
     Dates: start: 20100201
  23. K-DUR [Concomitant]
     Dosage: 20 MILLIEQUIVALENTS
     Route: 048
     Dates: start: 20110407
  24. BENADRYL [Concomitant]
     Route: 048
     Dates: start: 20101101

REACTIONS (1)
  - DEEP VEIN THROMBOSIS [None]
